FAERS Safety Report 14217453 (Version 5)
Quarter: 2018Q3

REPORT INFORMATION
  Report Type: Report from Study
  Country: None (occurrence: US)
  Receive Date: 20171123
  Receipt Date: 20180903
  Transmission Date: 20181010
  Serious: Yes (Other)
  Sender: FDA-Public Use
  Company Number: US-ABBVIE-17K-163-2012316-00

PATIENT
  Sex: Female

DRUGS (2)
  1. HUMIRA [Suspect]
     Active Substance: ADALIMUMAB
     Indication: CROHN^S DISEASE
     Route: 058
  2. HUMIRA [Suspect]
     Active Substance: ADALIMUMAB
     Indication: ANKYLOSING SPONDYLITIS
     Route: 058
     Dates: end: 2017

REACTIONS (14)
  - Fatigue [Unknown]
  - Immune system disorder [Unknown]
  - Pain in jaw [Not Recovered/Not Resolved]
  - Crohn^s disease [Not Recovered/Not Resolved]
  - Ankylosing spondylitis [Recovering/Resolving]
  - Neurodermatitis [Unknown]
  - Ovarian cyst [Unknown]
  - Defaecation urgency [Not Recovered/Not Resolved]
  - Haematochezia [Not Recovered/Not Resolved]
  - Joint stiffness [Unknown]
  - Headache [Not Recovered/Not Resolved]
  - Nasopharyngitis [Recovered/Resolved]
  - Frequent bowel movements [Not Recovered/Not Resolved]
  - Ovarian cyst ruptured [Unknown]

NARRATIVE: CASE EVENT DATE: 2017
